FAERS Safety Report 20937688 (Version 2)
Quarter: 2022Q2

REPORT INFORMATION
  Report Type: Spontaneous
  Country: US (occurrence: US)
  Receive Date: 20220609
  Receipt Date: 20220628
  Transmission Date: 20220721
  Serious: Yes (Other)
  Sender: FDA-Public Use
  Company Number: US-KOREA IPSEN Pharma-2022-16508

PATIENT
  Age: 5 Year
  Sex: Male
  Weight: 20.9 kg

DRUGS (3)
  1. DYSPORT [Suspect]
     Active Substance: ABOBOTULINUMTOXINA
     Indication: Muscle spasticity
     Dosage: 600 IU (300 EACH)
     Route: 065
     Dates: start: 20220602, end: 20220602
  2. VALPROIC ACID [Concomitant]
     Active Substance: VALPROIC ACID
  3. KEPPRA [Concomitant]
     Active Substance: LEVETIRACETAM
     Dosage: 4 ML

REACTIONS (2)
  - Seizure [Unknown]
  - Product preparation error [Unknown]

NARRATIVE: CASE EVENT DATE: 20220602
